FAERS Safety Report 9937864 (Version 2)
Quarter: 2014Q2

REPORT INFORMATION
  Report Type: Report from Study
  Country: US (occurrence: US)
  Receive Date: 20140303
  Receipt Date: 20140502
  Transmission Date: 20141212
  Serious: Yes (Other)
  Sender: FDA-Public Use
  Company Number: US-ROCHE-1352280

PATIENT
  Age: 70 Year
  Sex: Female
  Weight: 93.52 kg

DRUGS (23)
  1. HERCEPTIN [Suspect]
     Indication: BREAST CANCER
     Route: 065
     Dates: start: 20131212
  2. ATACAND [Concomitant]
     Indication: BLOOD PRESSURE
     Route: 048
  3. SYNTHROID [Concomitant]
     Route: 048
  4. NEXIUM [Concomitant]
     Route: 048
     Dates: start: 2004
  5. NORVASC [Concomitant]
     Indication: BLOOD PRESSURE
     Route: 048
  6. ZANTAC [Concomitant]
     Indication: GASTROOESOPHAGEAL REFLUX DISEASE
     Route: 048
  7. FOLBIC [Concomitant]
     Route: 065
  8. LOVAZA [Concomitant]
     Indication: BLOOD TRIGLYCERIDES
     Route: 048
     Dates: start: 2009
  9. XANAX [Concomitant]
     Dosage: PM
     Route: 048
     Dates: start: 2001
  10. XANAX [Concomitant]
     Route: 065
  11. BENADRYL (UNITED STATES) [Concomitant]
     Indication: UPPER-AIRWAY COUGH SYNDROME
     Dosage: AS NEEDED
     Route: 048
  12. TYLENOL [Concomitant]
     Route: 048
  13. SENOKOT [Concomitant]
     Indication: CONSTIPATION
     Dosage: AS NEEDED
     Route: 048
  14. COLACE [Concomitant]
     Indication: CONSTIPATION
     Dosage: AS NEEDED
     Route: 048
  15. VITAMIN D3 [Concomitant]
     Route: 048
     Dates: start: 2012
  16. DELSYM [Concomitant]
     Indication: COUGH
     Dosage: 1 TABLESPOON BY MOUTH ON AND OFF
     Route: 065
  17. ATIVAN [Concomitant]
     Indication: ANXIETY
     Dosage: AS NEEDED
     Route: 048
     Dates: start: 201312
  18. COMPAZINE [Concomitant]
     Indication: NAUSEA
     Dosage: AS NEEDED
     Route: 048
  19. ZOFRAN [Concomitant]
     Indication: NAUSEA
     Dosage: AS NEEDED
     Route: 048
     Dates: start: 201312
  20. QVAR [Concomitant]
     Route: 050
  21. NASONEX [Concomitant]
  22. CARBOPLATIN [Concomitant]
  23. TAXOTERE [Concomitant]

REACTIONS (17)
  - Dehydration [Recovered/Resolved]
  - Depression [Not Recovered/Not Resolved]
  - Rash [Not Recovered/Not Resolved]
  - Pruritus [Not Recovered/Not Resolved]
  - Fatigue [Not Recovered/Not Resolved]
  - Decreased appetite [Not Recovered/Not Resolved]
  - Headache [Not Recovered/Not Resolved]
  - Cystitis [Recovering/Resolving]
  - Abdominal pain upper [Unknown]
  - Diarrhoea [Unknown]
  - Fatigue [Unknown]
  - Fatigue [Not Recovered/Not Resolved]
  - Cough [Not Recovered/Not Resolved]
  - Asthma [Not Recovered/Not Resolved]
  - Red blood cell count decreased [Recovering/Resolving]
  - White blood cell count abnormal [Recovering/Resolving]
  - Loss of consciousness [Recovering/Resolving]
